FAERS Safety Report 6838697-9 (Version None)
Quarter: 2010Q3

REPORT INFORMATION
  Report Type: 
  Country: None (occurrence: None)
  Receive Date: 20100713
  Receipt Date: 20070614
  Transmission Date: 20110219
  Serious: No
  Sender: FDA-Public Use
  Company Number: US-PFIZER INC-2007039876

PATIENT
  Age: 31 Year
  Sex: Male
  Weight: 127.27 kg

DRUGS (1)
  1. CHANTIX [Suspect]
     Dates: start: 20070101, end: 20070101

REACTIONS (2)
  - DRUG SCREEN POSITIVE [None]
  - NAUSEA [None]
